FAERS Safety Report 6721502-9 (Version None)
Quarter: 2010Q2

REPORT INFORMATION
  Report Type: 
  Country: None (occurrence: None)
  Receive Date: 20100510
  Receipt Date: 20091209
  Transmission Date: 20101027
  Serious: Yes (Hospitalization)
  Sender: FDA-Public Use
  Company Number: 05-001016

PATIENT
  Age: 86 Year
  Sex: Female

DRUGS (10)
  1. DOVONEX [Suspect]
     Indication: PITYRIASIS RUBRA PILARIS
     Dosage: (10 GM),TOPICAL ; (5 GM),TOPICAL
     Route: 061
     Dates: start: 20051011, end: 20051104
  2. DOVONEX [Suspect]
     Indication: PITYRIASIS RUBRA PILARIS
     Dosage: (10 GM),TOPICAL ; (5 GM),TOPICAL
     Route: 061
     Dates: end: 20051104
  3. VASOLAN (VERAPAMIL HYDROCHLORIDE) (TABLETS) [Concomitant]
  4. ITOROL (ISOSORBIDE MONONITRATE) (TABLETS) [Concomitant]
  5. ASPIRIN [Concomitant]
  6. MUCODYNE (CARBOCISTEINE) (TABLETS) [Concomitant]
  7. MAGTACT U (ALL OTHER THERAPEUTIC PRODUCTS) (TABLETS) [Concomitant]
  8. LANSOPRAZOLE [Concomitant]
  9. TIGASON (ETRETINATE) (CAPSULES) [Concomitant]
  10. SAHNE (RETINOL) [Concomitant]

REACTIONS (10)
  - CONDITION AGGRAVATED [None]
  - DECREASED APPETITE [None]
  - DEHYDRATION [None]
  - ERYTHEMA [None]
  - HYPERCALCAEMIA [None]
  - OFF LABEL USE [None]
  - RENAL FAILURE [None]
  - SKIN ATROPHY [None]
  - SKIN DISORDER [None]
  - SKIN EXFOLIATION [None]
